FAERS Safety Report 13422934 (Version 1)
Quarter: 2017Q2

REPORT INFORMATION
  Report Type: Spontaneous
  Country: US (occurrence: US)
  Receive Date: 20170410
  Receipt Date: 20170410
  Transmission Date: 20170830
  Serious: Yes (Other)
  Sender: FDA-Public Use
  Company Number: US-AMGEN-USASP2017052376

PATIENT
  Age: 58 Year
  Sex: Female
  Weight: 56.24 kg

DRUGS (9)
  1. MEDROL [Concomitant]
     Active Substance: METHYLPREDNISOLONE
     Dosage: 4 MG, TAKE AS DIRECTED ON PACKAGE
  2. MTX [Concomitant]
     Active Substance: METHOTREXATE SODIUM
     Dosage: 15 MG, WEEKLY
     Route: 048
  3. ENBREL [Suspect]
     Active Substance: ETANERCEPT
     Indication: RHEUMATOID ARTHRITIS
     Dosage: 50 MG, WEEKLY
     Route: 058
     Dates: start: 200502, end: 201608
  4. MTX [Concomitant]
     Active Substance: METHOTREXATE SODIUM
     Indication: PRODUCT USED FOR UNKNOWN INDICATION
     Dosage: 2.5 MG TAB 3 Q WEEKLY
     Route: 048
     Dates: start: 201101
  5. SYNTHROID [Concomitant]
     Active Substance: LEVOTHYROXINE SODIUM
     Dosage: 125 MUG, UNK
  6. FOLIC ACID. [Concomitant]
     Active Substance: FOLIC ACID
     Dosage: 1 MG, QD
  7. ZORVOLEX [Concomitant]
     Active Substance: DICLOFENAC
     Dosage: 35 MG, TID
  8. CITRACAL PLUS D [Concomitant]
     Dosage: 600 MG, BID
  9. PREDNISONE. [Concomitant]
     Active Substance: PREDNISONE
     Indication: RHEUMATOID ARTHRITIS
     Dosage: 5 MG, QD
     Route: 048
     Dates: start: 201608

REACTIONS (7)
  - Malaise [Unknown]
  - Sensitivity to weather change [Unknown]
  - Limb deformity [Unknown]
  - Rheumatoid arthritis [Recovering/Resolving]
  - Loss of personal independence in daily activities [Unknown]
  - Hypersensitivity [Unknown]
  - Grip strength decreased [Unknown]

NARRATIVE: CASE EVENT DATE: 201607
